FAERS Safety Report 7373426-4 (Version None)
Quarter: 2011Q1

REPORT INFORMATION
  Report Type: 
  Country: None (occurrence: None)
  Receive Date: 20110325
  Receipt Date: 20110318
  Transmission Date: 20110831
  Serious: Yes (Hospitalization)
  Sender: FDA-Public Use
  Company Number: US-BIOGENIDEC-2011BI004194

PATIENT
  Age: 57 Year
  Sex: Female
  Weight: 59 kg

DRUGS (7)
  1. LIORESAL [Concomitant]
     Indication: MUSCLE SPASTICITY
     Route: 048
     Dates: start: 20110103
  2. ATENOLOL [Concomitant]
     Route: 048
  3. TYSABRI [Suspect]
     Indication: MULTIPLE SCLEROSIS
     Route: 042
     Dates: start: 20071113
  4. LEVOTHYROXINE SODIUM [Concomitant]
     Dosage: DOSE UNIT:75
     Route: 048
     Dates: start: 20110103
  5. PREMARIN [Concomitant]
     Indication: HORMONE REPLACEMENT THERAPY
     Route: 048
     Dates: start: 20110103
  6. NIZATIDINE [Concomitant]
     Route: 048
     Dates: start: 20110103
  7. AMANTADINE HCL [Concomitant]
     Indication: FATIGUE
     Route: 048
     Dates: start: 20110103

REACTIONS (2)
  - SUPRAVENTRICULAR TACHYCARDIA [None]
  - LOCALISED INFECTION [None]
